FAERS Safety Report 5991342-7 (Version None)
Quarter: 2008Q4

REPORT INFORMATION
  Report Type: 
  Country: None (occurrence: None)
  Receive Date: 20081211
  Receipt Date: 20080426
  Transmission Date: 20090506
  Serious: No
  Sender: FDA-Public Use
  Company Number: US-AMGEN-KDL276553

PATIENT
  Sex: Female

DRUGS (2)
  1. ENBREL [Suspect]
     Indication: DRUG USE FOR UNKNOWN INDICATION
  2. CORTISONE ACETATE TAB [Concomitant]

REACTIONS (2)
  - ARTHRALGIA [None]
  - IRRITABILITY [None]
